FAERS Safety Report 6030246-0 (Version None)
Quarter: 2009Q1

REPORT INFORMATION
  Report Type: 
  Country: None (occurrence: None)
  Receive Date: 20090107
  Receipt Date: 20090105
  Transmission Date: 20090719
  Serious: Yes (Life-Threatening)
  Sender: FDA-Public Use
  Company Number: US-KINGPHARMUSA00001-K200900003

PATIENT
  Age: 55 Year
  Sex: Female

DRUGS (8)
  1. ALTACE [Suspect]
     Dosage: UNK
  2. ARAVA [Suspect]
     Dosage: 20 MG, QD
     Route: 048
     Dates: start: 20000101
  3. PLAVIX [Suspect]
     Dosage: UNK
  4. PLAQUENIL [Suspect]
     Dosage: UNK
  5. LIPITOR [Concomitant]
     Dosage: UNK
  6. NEXIUM                             /01479303/ [Concomitant]
     Dosage: UNK
  7. HAY FEVER RELIEF [Concomitant]
     Indication: SEASONAL ALLERGY
     Dosage: UNK
  8. PANADEINE                          /00116401/ [Concomitant]
     Dosage: UNK

REACTIONS (1)
  - MYOCARDIAL INFARCTION [None]
